FAERS Safety Report 4985445-3 (Version None)
Quarter: 2006Q2

REPORT INFORMATION
  Report Type: 
  Country: None (occurrence: None)
  Receive Date: 20060428
  Receipt Date: 20060420
  Transmission Date: 20061013
  Serious: Yes (Hospitalization)
  Sender: FDA-Public Use
  Company Number: NO-JNJFOC-20050605920

PATIENT
  Age: 64 Year
  Sex: Male

DRUGS (6)
  1. REMICADE [Suspect]
     Dosage: 23RD INFUSION
     Route: 042
  2. REMICADE [Suspect]
     Indication: RHEUMATOID ARTHRITIS
     Route: 042
  3. METHOTREXATE [Concomitant]
     Route: 065
  4. CELECOXIB [Concomitant]
     Route: 065
  5. PREDNISOLONE [Concomitant]
     Route: 065
  6. PARACETEMOL [Concomitant]
     Route: 065

REACTIONS (1)
  - PARKINSON'S DISEASE [None]
